FAERS Safety Report 14393451 (Version 1)
Quarter: 2018Q1

REPORT INFORMATION
  Report Type: Spontaneous
  Country: US (occurrence: US)
  Receive Date: 20180114
  Receipt Date: 20180114
  Transmission Date: 20180509
  Serious: Yes (Other)
  Sender: FDA-Public Use
  Company Number: None

PATIENT
  Age: 3 Year
  Sex: Female
  Weight: 17.1 kg

DRUGS (1)
  1. HYDROCORTISONE. [Suspect]
     Active Substance: HYDROCORTISONE
     Indication: ECZEMA
     Route: 061
     Dates: start: 20140814, end: 20170910

REACTIONS (14)
  - Withdrawal syndrome [None]
  - Fatigue [None]
  - Therapy cessation [None]
  - Erythema [None]
  - Wound secretion [None]
  - Skin fissures [None]
  - Chills [None]
  - Drug ineffective [None]
  - Skin burning sensation [None]
  - Feeling cold [None]
  - Lymphadenopathy [None]
  - Skin exfoliation [None]
  - Pruritus [None]
  - Insomnia [None]

NARRATIVE: CASE EVENT DATE: 20171108
